FAERS Safety Report 13761939 (Version 1)
Quarter: 2017Q3

REPORT INFORMATION
  Report Type: Spontaneous
  Country: US (occurrence: US)
  Receive Date: 20170718
  Receipt Date: 20170718
  Transmission Date: 20171127
  Serious: Yes (Life-Threatening, Hospitalization, Other)
  Sender: FDA-Public Use
  Company Number: US-TORRENT-00003186

PATIENT
  Age: 71 Year
  Sex: Male

DRUGS (15)
  1. PROPOFOL. [Concomitant]
     Active Substance: PROPOFOL
  2. OMEPRAZOLE. [Concomitant]
     Active Substance: OMEPRAZOLE
  3. TERAZOSIN [Concomitant]
     Active Substance: TERAZOSIN\TERAZOSIN HYDROCHLORIDE
  4. OXYGEN. [Concomitant]
     Active Substance: OXYGEN
  5. PROPOFOL. [Concomitant]
     Active Substance: PROPOFOL
  6. FENTANYL. [Concomitant]
     Active Substance: FENTANYL
  7. ROCURONIUM [Concomitant]
     Active Substance: ROCURONIUM BROMIDE
  8. SEVOFLURANE. [Concomitant]
     Active Substance: SEVOFLURANE
  9. REMIFENTANIL [Concomitant]
     Active Substance: REMIFENTANIL
  10. PRAVASTATIN. [Concomitant]
     Active Substance: PRAVASTATIN
  11. SERTRALINE [Suspect]
     Active Substance: SERTRALINE HYDROCHLORIDE
  12. HYDROCODONE/PARACETAMOL [Concomitant]
  13. LISINOPRIL. [Concomitant]
     Active Substance: LISINOPRIL
  14. AMLODIPINE [Concomitant]
     Active Substance: AMLODIPINE BESYLATE
  15. TRAMADOL. [Concomitant]
     Active Substance: TRAMADOL

REACTIONS (3)
  - Haemorrhage [Recovered/Resolved]
  - Drug interaction [Recovered/Resolved]
  - Food interaction [Recovered/Resolved]
